FAERS Safety Report 24954907 (Version 1)
Quarter: 2025Q1

REPORT INFORMATION
  Report Type: Spontaneous
  Country: AT (occurrence: AT)
  Receive Date: 20250211
  Receipt Date: 20250211
  Transmission Date: 20250409
  Serious: Yes (Hospitalization)
  Sender: BRISTOL-MYERS SQUIBB COMPANY
  Company Number: AT-BRISTOL-MYERS SQUIBB COMPANY-2025-017647

PATIENT
  Age: 73 Year

DRUGS (6)
  1. KRAZATI [Suspect]
     Active Substance: ADAGRASIB
     Indication: Metastatic neoplasm
     Dates: start: 20241121, end: 20241221
  2. KRAZATI [Suspect]
     Active Substance: ADAGRASIB
     Dates: start: 20250131
  3. AMLODIPIN/VALSARTAN 1 A PHARMA [Concomitant]
     Indication: Hypertension
     Dosage: AMLODIPIN/VALSARTAN + PHARMA 5MG/ 80 MG, DOSE: 5/80,
  4. PANTOPRAZOLE SODIUM [Concomitant]
     Active Substance: PANTOPRAZOLE SODIUM
     Indication: Chronic gastritis
  5. CALCIUM\VITAMIN D [Concomitant]
     Active Substance: CALCIUM\VITAMIN D
     Indication: Metastases to bone
     Dosage: CAL-D-VITA500MG/800I.U
  6. DENOSUMAB [Concomitant]
     Active Substance: DENOSUMAB
     Indication: Metastases to bone

REACTIONS (1)
  - Liver disorder [Recovering/Resolving]

NARRATIVE: CASE EVENT DATE: 20241221
